FAERS Safety Report 4269607-9 (Version None)
Quarter: 2004Q1

REPORT INFORMATION
  Report Type: 
  Country: None (occurrence: None)
  Receive Date: 20040112
  Receipt Date: 20031229
  Transmission Date: 20041129
  Serious: Yes (Hospitalization)
  Sender: FDA-Public Use
  Company Number: RENA-10715

PATIENT
  Age: 58 Year
  Sex: Male
  Weight: 52 kg

DRUGS (15)
  1. RENAGEL [Suspect]
     Indication: HYPERPHOSPHATAEMIA
     Dosage: 1.5 G QD PO
     Route: 048
     Dates: start: 20030807, end: 20030927
  2. ALLOPURINOL [Concomitant]
  3. LASIX [Concomitant]
  4. PERSANTIN [Concomitant]
  5. CARDENALIN [Concomitant]
  6. ALOSENN [Concomitant]
  7. MUCOSTA [Concomitant]
  8. BISOLVON [Concomitant]
  9. LENDORM [Concomitant]
  10. ALFAROL [Concomitant]
  11. PIMENOL [Concomitant]
  12. MEXITIL [Concomitant]
  13. TAKEPRON [Concomitant]
  14. EPOGIN [Concomitant]
  15. AMLODIN [Concomitant]

REACTIONS (12)
  - ABDOMINAL DISTENSION [None]
  - ABDOMINAL PAIN [None]
  - ARTHRALGIA [None]
  - ASCITES [None]
  - C-REACTIVE PROTEIN INCREASED [None]
  - CHEST DISCOMFORT [None]
  - CONSTIPATION [None]
  - INTESTINAL OBSTRUCTION [None]
  - NAUSEA [None]
  - PAIN [None]
  - PERITONEAL DISORDER [None]
  - X-RAY ABNORMAL [None]
